FAERS Safety Report 13915769 (Version 1)
Quarter: 2017Q3

REPORT INFORMATION
  Report Type: Spontaneous
  Country: US (occurrence: None)
  Receive Date: 20170827
  Receipt Date: 20170827
  Transmission Date: 20171127
  Serious: No
  Sender: FDA-Public Use
  Company Number: None

PATIENT
  Age: 52 Year
  Sex: Female

DRUGS (1)
  1. ZEPATIER [Suspect]
     Active Substance: ELBASVIR\GRAZOPREVIR
     Indication: HEPATITIS C
     Dosage: DOSE - 50MG/100MG
     Route: 048
     Dates: start: 20170705

REACTIONS (4)
  - Constipation [None]
  - Dyspnoea [None]
  - Abdominal distension [None]
  - Headache [None]

NARRATIVE: CASE EVENT DATE: 20170812
